FAERS Safety Report 24341704 (Version 2)
Quarter: 2024Q4

REPORT INFORMATION
  Report Type: Report from Study
  Country: US (occurrence: US)
  Receive Date: 20240920
  Receipt Date: 20241018
  Transmission Date: 20250115
  Serious: Yes (Hospitalization, Other)
  Sender: ACADIA PHARMACEUTICALS
  Company Number: US-ACADIA PHARMACEUTICALS INC.-ACA-2024-PIM-003273

PATIENT
  Age: 76 Year
  Sex: Male

DRUGS (20)
  1. NUPLAZID [Suspect]
     Active Substance: PIMAVANSERIN TARTRATE
     Indication: Parkinson^s disease psychosis
     Dosage: 34 MILLIGRAM, QD
     Route: 048
  2. NUPLAZID [Suspect]
     Active Substance: PIMAVANSERIN TARTRATE
     Dosage: 34 MILLIGRAM, QD
     Route: 048
  3. NUPLAZID [Suspect]
     Active Substance: PIMAVANSERIN TARTRATE
     Dosage: 34 MILLIGRAM (DOSE IN THE MORNING AND THEN IN THE EVENING TRYING TO GET HIM BACK ON THE CORRECT SCHE
     Route: 048
  4. NUPLAZID [Suspect]
     Active Substance: PIMAVANSERIN TARTRATE
     Dosage: 34 MILLIGRAM, QD
     Route: 048
  5. OZEMPIC [Concomitant]
     Active Substance: SEMAGLUTIDE
  6. FERROUS SULFATE [Concomitant]
     Active Substance: FERROUS SULFATE
  7. VITAMINS NOS [Concomitant]
     Active Substance: VITAMINS
  8. LANTUS [Concomitant]
     Active Substance: INSULIN GLARGINE
  9. NYSTATIN [Concomitant]
     Active Substance: NYSTATIN
  10. KETOCONAZOLE [Concomitant]
     Active Substance: KETOCONAZOLE
  11. ATORVASTATIN [Concomitant]
     Active Substance: ATORVASTATIN
  12. ASPIRIN [Concomitant]
     Active Substance: ASPIRIN
  13. TAMSULOSIN [Concomitant]
     Active Substance: TAMSULOSIN
  14. ASCORBIC ACID [Concomitant]
     Active Substance: ASCORBIC ACID
  15. CYANOCOBALAMIN [Concomitant]
     Active Substance: CYANOCOBALAMIN
  16. METFORMIN [Concomitant]
     Active Substance: METFORMIN HYDROCHLORIDE
  17. FAMOTIDINE [Concomitant]
     Active Substance: FAMOTIDINE
  18. ACCUCEF [Concomitant]
  19. CARBIDOPA [Concomitant]
     Active Substance: CARBIDOPA
  20. ANHYDROUS DEXTROSE [Concomitant]
     Active Substance: ANHYDROUS DEXTROSE

REACTIONS (15)
  - Sepsis [Unknown]
  - COVID-19 [Unknown]
  - Knee arthroplasty [Not Recovered/Not Resolved]
  - Urinary tract infection [Not Recovered/Not Resolved]
  - Infection [Not Recovered/Not Resolved]
  - Delusion [Not Recovered/Not Resolved]
  - Depression [Not Recovered/Not Resolved]
  - Visual impairment [Not Recovered/Not Resolved]
  - Bradykinesia [Not Recovered/Not Resolved]
  - Resting tremor [Not Recovered/Not Resolved]
  - Musculoskeletal stiffness [Not Recovered/Not Resolved]
  - Anxiety [Not Recovered/Not Resolved]
  - Dizziness [Not Recovered/Not Resolved]
  - Hallucination [Not Recovered/Not Resolved]
  - Intentional overdose [Recovered/Resolved]

NARRATIVE: CASE EVENT DATE: 20240601
